FAERS Safety Report 4291503-1 (Version None)
Quarter: 2004Q1

REPORT INFORMATION
  Report Type: 
  Country: None (occurrence: None)
  Receive Date: 20040211
  Receipt Date: 20031210
  Transmission Date: 20041129
  Serious: No
  Sender: FDA-Public Use
  Company Number: US-BRISTOL-MYERS SQUIBB COMPANY-12455424

PATIENT
  Age: 3 Year
  Sex: Male

DRUGS (1)
  1. CEFZIL [Suspect]
     Route: 048
     Dates: start: 20031209

REACTIONS (1)
  - HALLUCINATION [None]
